FAERS Safety Report 8477783-7 (Version None)
Quarter: 2012Q2

REPORT INFORMATION
  Report Type: 
  Country: None (occurrence: None)
  Receive Date: 20120629
  Receipt Date: 20120405
  Transmission Date: 20120825
  Serious: No
  Sender: FDA-Public Use
  Company Number: US-GLAXOSMITHKLINE-A0973675A

PATIENT
  Sex: Male

DRUGS (2)
  1. ALBUTEROL [Suspect]
     Indication: PRODUCT USED FOR UNKNOWN INDICATION
     Route: 055
  2. ADVAIR DISKUS 100/50 [Concomitant]
     Indication: PRODUCT USED FOR UNKNOWN INDICATION
     Route: 055

REACTIONS (2)
  - ADVERSE DRUG REACTION [None]
  - TREMOR [None]
